FAERS Safety Report 9095362 (Version 1)
Quarter: 2013Q1

REPORT INFORMATION
  Report Type: Spontaneous
  Country: US (occurrence: US)
  Receive Date: 20130201
  Receipt Date: 20130201
  Transmission Date: 20140127
  Serious: No
  Sender: FDA-Public Use
  Company Number: US-009507513-1301USA014302

PATIENT
  Sex: Male

DRUGS (5)
  1. DULERA [Suspect]
     Indication: WHEEZING
     Dosage: UNK 2 PUFFS IN THE AM AND 2 PUFFS IN THE PM
     Route: 055
     Dates: start: 20130124
  2. AMLODIPINE [Concomitant]
  3. METOPROLOL [Concomitant]
  4. FUROSEMIDE [Concomitant]
  5. TERAZOSIN HYDROCHLORIDE [Concomitant]

REACTIONS (2)
  - Pulmonary congestion [Not Recovered/Not Resolved]
  - Increased upper airway secretion [Not Recovered/Not Resolved]
